FAERS Safety Report 20355238 (Version 1)
Quarter: 2022Q1

REPORT INFORMATION
  Report Type: Spontaneous
  Country: US (occurrence: None)
  Receive Date: 20220119
  Receipt Date: 20220119
  Transmission Date: 20220423
  Serious: No
  Sender: FDA-Public Use
  Company Number: None

PATIENT
  Age: 37 Year
  Sex: Male

DRUGS (1)
  1. BAMLANIVIMAB\ETESEVIMAB [Suspect]
     Active Substance: BAMLANIVIMAB\ETESEVIMAB
     Indication: COVID-19 treatment
     Dosage: OTHER FREQUENCY : ONCE;?

REACTIONS (4)
  - Infusion related reaction [None]
  - Dizziness [None]
  - Tachycardia [None]
  - Erythema [None]

NARRATIVE: CASE EVENT DATE: 20220116
